FAERS Safety Report 7984072-3 (Version None)
Quarter: 2011Q4

REPORT INFORMATION
  Report Type: 
  Country: None (occurrence: None)
  Receive Date: 20111216
  Receipt Date: 20111203
  Transmission Date: 20120403
  Serious: Yes (Hospitalization)
  Sender: FDA-Public Use
  Company Number: GB-RANBAXY-2011US-51002

PATIENT
  Age: 24 Year
  Sex: Female

DRUGS (2)
  1. DEXTROPROPOXYPHENE-PARACETAMOL RPG 30MG/400MG GELULE [Suspect]
     Indication: PRODUCT USED FOR UNKNOWN INDICATION
     Dosage: UNK,UNK
     Route: 048
  2. ACETAMINOPHEN [Suspect]
     Indication: PRODUCT USED FOR UNKNOWN INDICATION
     Dosage: UNK, UNK
     Route: 048

REACTIONS (2)
  - HYPOTHERMIA [None]
  - POISONING DELIBERATE [None]
